FAERS Safety Report 7027869-9 (Version None)
Quarter: 2010Q4

REPORT INFORMATION
  Report Type: 
  Country: None (occurrence: None)
  Receive Date: 20101005
  Receipt Date: 20100923
  Transmission Date: 20110411
  Serious: No
  Sender: FDA-Public Use
  Company Number: US-BIOGENIDEC-2010BI017774

PATIENT
  Sex: Female

DRUGS (2)
  1. TYSABRI [Suspect]
     Indication: MULTIPLE SCLEROSIS
     Route: 042
     Dates: start: 20090604
  2. AMPYRA [Concomitant]
     Indication: MUSCULAR WEAKNESS
     Dates: start: 20100301

REACTIONS (3)
  - MUSCULOSKELETAL STIFFNESS [None]
  - POOR VENOUS ACCESS [None]
  - URINARY TRACT INFECTION [None]
